FAERS Safety Report 20231002 (Version 1)
Quarter: 2021Q4

REPORT INFORMATION
  Report Type: Spontaneous
  Country: RU (occurrence: RU)
  Receive Date: 20211227
  Receipt Date: 20211227
  Transmission Date: 20220303
  Serious: Yes (Death, Life-Threatening, Other)
  Sender: FDA-Public Use
  Company Number: RU-AMGEN-RUSSP2021203366

PATIENT

DRUGS (5)
  1. CARFILZOMIB [Suspect]
     Active Substance: CARFILZOMIB
     Indication: Plasma cell myeloma
     Route: 065
  2. MELPHALAN [Suspect]
     Active Substance: MELPHALAN
     Indication: Plasma cell myeloma
     Dosage: UNK
     Route: 065
  3. CYCLOPHOSPHAMIDE [Concomitant]
     Active Substance: CYCLOPHOSPHAMIDE
     Indication: Plasma cell myeloma
     Dosage: UNK
     Route: 065
  4. BORTEZOMIB [Concomitant]
     Active Substance: BORTEZOMIB
     Indication: Plasma cell myeloma
  5. DEXAMETHASONE [Concomitant]
     Active Substance: DEXAMETHASONE
     Indication: Plasma cell myeloma

REACTIONS (14)
  - Cardiac failure acute [Fatal]
  - Agranulocytosis [Unknown]
  - Bacterial sepsis [Unknown]
  - Cytomegalovirus infection reactivation [Unknown]
  - Septic shock [Unknown]
  - Pneumonia [Unknown]
  - Sepsis [Unknown]
  - Thrombocytopenia [Unknown]
  - Epstein-Barr virus infection [Unknown]
  - Bacterial infection [Unknown]
  - Respiratory syncytial virus test positive [Unknown]
  - Staphylococcus test positive [Unknown]
  - Escherichia infection [Unknown]
  - Off label use [Unknown]
